FAERS Safety Report 5632779-5 (Version None)
Quarter: 2008Q1

REPORT INFORMATION
  Report Type: 
  Country: None (occurrence: None)
  Receive Date: 20080221
  Receipt Date: 20080121
  Transmission Date: 20080703
  Serious: No
  Sender: FDA-Public Use
  Company Number: US-BAYER-200812448NA

PATIENT
  Age: 38 Year
  Sex: Female
  Weight: 95 kg

DRUGS (8)
  1. MIRENA [Suspect]
     Indication: CONTRACEPTION
     Route: 015
     Dates: start: 20071204
  2. PROZAC [Concomitant]
  3. TOPROL [Concomitant]
  4. BUSPAR [Concomitant]
  5. TRAZODONE HCL [Concomitant]
  6. XANAX [Concomitant]
  7. NICOTINE [Concomitant]
  8. ALCOHOL [Concomitant]

REACTIONS (1)
  - ABDOMINAL PAIN [None]
